FAERS Safety Report 12098765 (Version 1)
Quarter: 2016Q1

REPORT INFORMATION
  Report Type: Spontaneous
  Country: US (occurrence: US)
  Receive Date: 20160222
  Receipt Date: 20160222
  Transmission Date: 20160526
  Serious: No
  Sender: FDA-Public Use
  Company Number: US-BAYER-2016-013760

PATIENT
  Age: 85 Year
  Sex: Female

DRUGS (2)
  1. LOTRIMIN ULTRA ANTIFUNGAL [Suspect]
     Active Substance: BUTENAFINE HYDROCHLORIDE
     Indication: SKIN INFECTION
     Dosage: 1 DF, UNK
     Route: 061
     Dates: start: 20160118
  2. LOTRIMIN AF ANTIFUNGAL [Suspect]
     Active Substance: MICONAZOLE NITRATE
     Indication: RASH PRURITIC
     Route: 061

REACTIONS (6)
  - Rash erythematous [None]
  - Discomfort [None]
  - Therapeutic response unexpected [None]
  - Rash pruritic [None]
  - Product use issue [None]
  - Pruritus [None]

NARRATIVE: CASE EVENT DATE: 20160118
